FAERS Safety Report 5412232-4 (Version None)
Quarter: 2007Q3

REPORT INFORMATION
  Report Type: 
  Country: None (occurrence: None)
  Receive Date: 20070713
  Receipt Date: 20070521
  Transmission Date: 20080115
  Serious: No
  Sender: FDA-Public Use
  Company Number: 2007SP001878

PATIENT
  Age: 53 Year
  Sex: Female
  Weight: 52.1637 kg

DRUGS (7)
  1. LUNESTA [Suspect]
     Indication: INSOMNIA
     Dosage: 2 MG PRN ORAL
     Route: 048
     Dates: start: 20070327, end: 20070401
  2. METHOTREXATE [Concomitant]
  3. VICODIN [Concomitant]
  4. XANAX [Concomitant]
  5. FOLIC ACID [Concomitant]
  6. CALCIUM [Concomitant]
  7. RESTORIL [Concomitant]

REACTIONS (1)
  - INSOMNIA [None]
